FAERS Safety Report 4593047-6 (Version None)
Quarter: 2005Q1

REPORT INFORMATION
  Report Type: 
  Country: None (occurrence: None)
  Receive Date: 20050301
  Receipt Date: 20050222
  Transmission Date: 20050727
  Serious: Yes (Other)
  Sender: FDA-Public Use
  Company Number: GB-JNJFOC-20050205584

PATIENT
  Age: 37 Year

DRUGS (4)
  1. REMICADE [Suspect]
     Indication: RHEUMATOID ARTHRITIS
     Route: 041
  2. METHOTREXATE [Concomitant]
     Route: 049
  3. FOLIC ACID [Concomitant]
     Route: 049
  4. NUROFEN [Concomitant]
     Indication: PAIN
     Route: 049

REACTIONS (7)
  - DYSPNOEA [None]
  - HEART RATE INCREASED [None]
  - HOT FLUSH [None]
  - HYPERTENSION [None]
  - INFUSION RELATED REACTION [None]
  - PARAESTHESIA [None]
  - THROAT TIGHTNESS [None]
